FAERS Safety Report 6326220-7 (Version None)
Quarter: 2009Q3

REPORT INFORMATION
  Report Type: 
  Country: None (occurrence: None)
  Receive Date: 20090824
  Receipt Date: 20090817
  Transmission Date: 20100115
  Serious: Yes (Other)
  Sender: FDA-Public Use
  Company Number: DE-AMGEN-UK358814

PATIENT
  Sex: Male
  Weight: 74.5 kg

DRUGS (25)
  1. ARANESP [Suspect]
     Indication: RENAL FAILURE CHRONIC
     Route: 042
     Dates: start: 20040906
  2. VITAMIN B-12 [Concomitant]
     Route: 065
     Dates: start: 20081101
  3. FERRLECIT [Concomitant]
     Route: 065
     Dates: start: 20081101
  4. VITARENAL [Concomitant]
  5. FOSRENOL [Concomitant]
  6. RENAGEL [Concomitant]
  7. CALCIUM ACETATE [Concomitant]
  8. VITAMIN D3 [Concomitant]
  9. AMLODIPINE [Concomitant]
  10. METOPROLOL SUCCINATE [Concomitant]
  11. RAMIPRIL [Concomitant]
  12. DOXAZOSIN [Concomitant]
  13. NEPRESOL [Concomitant]
  14. PREDNISOLONE [Concomitant]
  15. AZATHIOPRINE [Concomitant]
     Dates: start: 20070301, end: 20090811
  16. PANTOZOL [Concomitant]
  17. CALCITRIOL [Concomitant]
     Route: 065
  18. SODIUM BICARBONATE [Concomitant]
  19. POLYSTYRENE SULFONATE [Concomitant]
  20. BLOOD CELLS, PACKED HUMAN [Concomitant]
     Dates: start: 20031104, end: 20090804
  21. CYCLOPHOSPHAMIDE [Concomitant]
     Dates: start: 20031001, end: 20060801
  22. MYCOPHENOLATE MOFETIL [Concomitant]
     Dates: start: 20041201, end: 20060301
  23. PREDNISOLONE [Concomitant]
     Dates: start: 20040125, end: 20041201
  24. PROCAINAMIDE [Concomitant]
     Route: 030
     Dates: start: 20040101, end: 20040101
  25. ALLOPURINOL [Concomitant]
     Dates: end: 20060101

REACTIONS (2)
  - ANAEMIA [None]
  - APLASIA PURE RED CELL [None]
